APPROVED DRUG PRODUCT: VOSOL
Active Ingredient: ACETIC ACID, GLACIAL
Strength: 2% **Federal Register determination that product was not discontinued or withdrawn for safety or effectiveness reasons**
Dosage Form/Route: SOLUTION/DROPS;OTIC
Application: N012179 | Product #001
Applicant: HIKMA PHARMACEUTICALS USA INC
Approved: Approved Prior to Jan 1, 1982 | RLD: Yes | RS: No | Type: DISCN